FAERS Safety Report 5906472-5 (Version None)
Quarter: 2008Q4

REPORT INFORMATION
  Report Type: 
  Country: None (occurrence: None)
  Receive Date: 20081002
  Receipt Date: 20080923
  Transmission Date: 20090506
  Serious: No
  Sender: FDA-Public Use
  Company Number: US-B.I. PHARMACEUTICALS,INC./RIDGEFIELD-2008-BP-14881BP

PATIENT

DRUGS (1)
  1. MIRAPEX [Suspect]

REACTIONS (1)
  - DRUG INEFFECTIVE [None]
